FAERS Safety Report 5526136-X (Version None)
Quarter: 2007Q4

REPORT INFORMATION
  Report Type: 
  Country: None (occurrence: None)
  Receive Date: 20071120
  Receipt Date: 20071108
  Transmission Date: 20080405
  Serious: Yes (Other)
  Sender: FDA-Public Use
  Company Number: GXKR2007ES09639

PATIENT
  Age: 85 Year
  Sex: Female

DRUGS (2)
  1. PARACETAMOL (NGX)(PARACETAMOL) UNKNOWN [Suspect]
     Indication: OSTEOARTHRITIS
  2. CORTICOSTEROIDS (NO INGREDIENTS/SUBSTANCES) [Concomitant]

REACTIONS (2)
  - HEPATOCELLULAR DAMAGE [None]
  - HEPATOTOXICITY [None]
